FAERS Safety Report 22525907 (Version 5)
Quarter: 2023Q4

REPORT INFORMATION
  Report Type: Report from Study
  Country: ES (occurrence: ES)
  Receive Date: 20230606
  Receipt Date: 20231121
  Transmission Date: 20240110
  Serious: Yes (Other)
  Sender: FDA-Public Use
  Company Number: ES-TAKEDA-2023TUS055376

PATIENT
  Age: 3 Year
  Sex: Male

DRUGS (20)
  1. TEDUGLUTIDE [Suspect]
     Active Substance: TEDUGLUTIDE
     Indication: Short-bowel syndrome
     Dosage: 0.5 MILLIGRAM, QD
     Route: 042
     Dates: start: 20200813, end: 20201119
  2. TEDUGLUTIDE [Suspect]
     Active Substance: TEDUGLUTIDE
     Indication: Short-bowel syndrome
     Dosage: 0.5 MILLIGRAM, QD
     Route: 042
     Dates: start: 20200813, end: 20201119
  3. TEDUGLUTIDE [Suspect]
     Active Substance: TEDUGLUTIDE
     Indication: Short-bowel syndrome
     Dosage: 0.5 MILLIGRAM, QD
     Route: 042
     Dates: start: 20200813, end: 20201119
  4. TEDUGLUTIDE [Suspect]
     Active Substance: TEDUGLUTIDE
     Indication: Short-bowel syndrome
     Dosage: 0.5 MILLIGRAM, QD
     Route: 042
     Dates: start: 20200813, end: 20201119
  5. TEDUGLUTIDE [Suspect]
     Active Substance: TEDUGLUTIDE
     Dosage: 0.5 MILLIGRAM, QD
     Route: 042
     Dates: start: 20201119, end: 20210531
  6. TEDUGLUTIDE [Suspect]
     Active Substance: TEDUGLUTIDE
     Dosage: 0.5 MILLIGRAM, QD
     Route: 042
     Dates: start: 20201119, end: 20210531
  7. TEDUGLUTIDE [Suspect]
     Active Substance: TEDUGLUTIDE
     Dosage: 0.5 MILLIGRAM, QD
     Route: 042
     Dates: start: 20201119, end: 20210531
  8. TEDUGLUTIDE [Suspect]
     Active Substance: TEDUGLUTIDE
     Dosage: 0.5 MILLIGRAM, QD
     Route: 042
     Dates: start: 20201119, end: 20210531
  9. TEDUGLUTIDE [Suspect]
     Active Substance: TEDUGLUTIDE
     Dosage: 0.5 MILLIGRAM, QD
     Route: 042
     Dates: start: 20210531, end: 20211001
  10. TEDUGLUTIDE [Suspect]
     Active Substance: TEDUGLUTIDE
     Dosage: 0.5 MILLIGRAM, QD
     Route: 042
     Dates: start: 20210531, end: 20211001
  11. TEDUGLUTIDE [Suspect]
     Active Substance: TEDUGLUTIDE
     Dosage: 0.5 MILLIGRAM, QD
     Route: 042
     Dates: start: 20210531, end: 20211001
  12. TEDUGLUTIDE [Suspect]
     Active Substance: TEDUGLUTIDE
     Dosage: 0.5 MILLIGRAM, QD
     Route: 042
     Dates: start: 20210531, end: 20211001
  13. TEDUGLUTIDE [Suspect]
     Active Substance: TEDUGLUTIDE
     Dosage: 0.5 MILLIGRAM, 3/WEEK
     Route: 042
     Dates: start: 20211001, end: 20220403
  14. TEDUGLUTIDE [Suspect]
     Active Substance: TEDUGLUTIDE
     Dosage: 0.5 MILLIGRAM, 3/WEEK
     Route: 042
     Dates: start: 20211001, end: 20220403
  15. TEDUGLUTIDE [Suspect]
     Active Substance: TEDUGLUTIDE
     Dosage: 0.5 MILLIGRAM, 3/WEEK
     Route: 042
     Dates: start: 20211001, end: 20220403
  16. TEDUGLUTIDE [Suspect]
     Active Substance: TEDUGLUTIDE
     Dosage: 0.5 MILLIGRAM, 3/WEEK
     Route: 042
     Dates: start: 20211001, end: 20220403
  17. Cohortan [Concomitant]
     Indication: Rectal haemorrhage
     Dosage: UNK UNK, BID
     Route: 061
     Dates: start: 20230525, end: 20230601
  18. CIANOCOBALAMINA [Concomitant]
     Indication: Vitamin B12 deficiency
     Dosage: 0.25 MILLIGRAM, 1/WEEK
     Route: 048
     Dates: start: 20230202
  19. ESOMEPRAZOLE [Concomitant]
     Active Substance: ESOMEPRAZOLE
     Indication: Abdominal pain
     Dosage: 10 MILLIGRAM, QD
     Route: 048
     Dates: start: 20230315, end: 20230325
  20. AMOXICILLIN [Concomitant]
     Active Substance: AMOXICILLIN
     Indication: Otitis media acute
     Dosage: 350 MILLIGRAM, TID
     Route: 048
     Dates: start: 20221227, end: 20230102

REACTIONS (1)
  - Rectal haemorrhage [Recovered/Resolved]

NARRATIVE: CASE EVENT DATE: 20230425
